FAERS Safety Report 5309311-9 (Version None)
Quarter: 2007Q2

REPORT INFORMATION
  Report Type: 
  Country: None (occurrence: None)
  Receive Date: 20070425
  Receipt Date: 20070425
  Transmission Date: 20071010
  Serious: Yes (Other)
  Sender: FDA-Public Use
  Company Number: None

PATIENT
  Age: 14 Year
  Sex: Male
  Weight: 84.369 kg

DRUGS (4)
  1. ZOLOFT [Suspect]
     Indication: AFFECTIVE DISORDER
     Dosage: 150 MG PO QD
     Route: 048
  2. ZOLOFT [Suspect]
     Indication: INTERMITTENT EXPLOSIVE DISORDER
     Dosage: 150 MG PO QD
     Route: 048
  3. LAMICTAL [Concomitant]
  4. GEODON [Concomitant]

REACTIONS (4)
  - AFFECT LABILITY [None]
  - AGITATION [None]
  - ANGER [None]
  - THERAPEUTIC RESPONSE UNEXPECTED WITH DRUG SUBSTITUTION [None]
